FAERS Safety Report 7680023-X (Version None)
Quarter: 2011Q3

REPORT INFORMATION
  Report Type: 
  Country: None (occurrence: None)
  Receive Date: 20110812
  Receipt Date: 20110809
  Transmission Date: 20111222
  Serious: Yes (Hospitalization)
  Sender: FDA-Public Use
  Company Number: NZ-CEPHALON-2011003219

PATIENT
  Sex: Female
  Weight: 85 kg

DRUGS (6)
  1. ACETAMINOPHEN [Concomitant]
  2. LEVOTHYROXINE SODIUM [Concomitant]
  3. TREANDA [Suspect]
     Indication: B-CELL LYMPHOMA
     Route: 042
     Dates: start: 20110526
  4. RITUXAN [Suspect]
     Indication: B-CELL LYMPHOMA
     Route: 042
     Dates: start: 20110525
  5. SYMBICORT [Concomitant]
  6. MELOXICAM [Concomitant]

REACTIONS (1)
  - VIRAL INFECTION [None]
